FAERS Safety Report 24546963 (Version 1)
Quarter: 2024Q4

REPORT INFORMATION
  Report Type: Report from Study
  Country: TN (occurrence: TN)
  Receive Date: 20241025
  Receipt Date: 20241025
  Transmission Date: 20250114
  Serious: Yes (Other)
  Sender: ABBVIE
  Company Number: TN-ABBVIE-5973184

PATIENT
  Age: 65 Year
  Sex: Male

DRUGS (8)
  1. HUMIRA [Suspect]
     Active Substance: ADALIMUMAB
     Indication: Colitis ulcerative
     Dosage: FORM STRENGTH UNITS: 40 MILLIGRAM
     Route: 058
     Dates: start: 202409
  2. HUMIRA [Suspect]
     Active Substance: ADALIMUMAB
     Dosage: LOADING DOSE: 160 MILLIGRAM,  FORM STRENGTH UNITS: 40 MILLIGRAM
     Route: 058
     Dates: start: 20240122, end: 20240122
  3. HUMIRA [Suspect]
     Active Substance: ADALIMUMAB
     Dosage: FORM STRENGTH UNITS: 40 MILLIGRAM
     Route: 058
     Dates: start: 20240528, end: 202408
  4. HUMIRA [Suspect]
     Active Substance: ADALIMUMAB
     Dosage: LOADING DOSE: 80 MILLIGRAM, FORM STRENGTH UNITS: 40 MILLIGRAM
     Route: 058
     Dates: start: 20240205, end: 20240205
  5. HUMIRA [Suspect]
     Active Substance: ADALIMUMAB
     Dosage: FORM STRENGTH UNITS: 40 MILLIGRAM
     Route: 058
     Dates: start: 20240219, end: 20240513
  6. PENTASA [Concomitant]
     Active Substance: MESALAMINE
     Indication: Colitis ulcerative
     Dosage: ONE SUPPOSITORY
     Route: 054
     Dates: start: 2023
  7. AZATHIOPRINE [Concomitant]
     Active Substance: AZATHIOPRINE
     Indication: Colitis ulcerative
     Dosage: TWO TABLET
     Route: 048
     Dates: start: 2023
  8. COLCHICINE [Concomitant]
     Active Substance: COLCHICINE
     Indication: Aphthous ulcer
     Dosage: ONE TABLET
     Route: 048
     Dates: start: 2023

REACTIONS (5)
  - Venous occlusion [Unknown]
  - Fatigue [Recovered/Resolved with Sequelae]
  - Vertigo [Recovered/Resolved]
  - Pruritus [Recovered/Resolved]
  - Therapeutic product effect incomplete [Unknown]

NARRATIVE: CASE EVENT DATE: 20240101
